FAERS Safety Report 10099676 (Version 8)
Quarter: 2016Q3

REPORT INFORMATION
  Report Type: Spontaneous
  Country: CA (occurrence: CA)
  Receive Date: 20140423
  Receipt Date: 20160915
  Transmission Date: 20161108
  Serious: Yes (Hospitalization, Other)
  Sender: FDA-Public Use
  Company Number: CA-GLAXOSMITHKLINE-A1041596A

PATIENT
  Age: 38 Year
  Sex: Female
  Weight: 109 kg

DRUGS (10)
  1. CELLCEPT [Concomitant]
     Active Substance: MYCOPHENOLATE MOFETIL\MYCOPHENOLATE MOFETIL HYDROCHLORIDE
     Indication: PRODUCT USED FOR UNKNOWN INDICATION
     Dosage: 2000 MG, UNK,4D FREQUENCY
     Route: 048
  2. ACETAMINOPHEN. [Concomitant]
     Active Substance: ACETAMINOPHEN
     Indication: PRODUCT USED FOR UNKNOWN INDICATION
     Dosage: 500 MG, UNK
  3. BENLYSTA [Suspect]
     Active Substance: BELIMUMAB
     Dosage: 10 MG/KG, UNK
     Route: 042
  4. PREDNISONE. [Concomitant]
     Active Substance: PREDNISONE
     Indication: PRODUCT USED FOR UNKNOWN INDICATION
     Dosage: 7.5 MG, 1D
  5. BENLYSTA [Suspect]
     Active Substance: BELIMUMAB
     Dosage: 1000 MG, Q4
     Route: 042
  6. PREDNISONE. [Concomitant]
     Active Substance: PREDNISONE
     Dosage: 4 MG, UNK
  7. BENLYSTA [Suspect]
     Active Substance: BELIMUMAB
     Dosage: 1000 MG, UNK
     Route: 042
  8. BENLYSTA [Suspect]
     Active Substance: BELIMUMAB
     Indication: SYSTEMIC LUPUS ERYTHEMATOSUS
     Dosage: AT WKS 0, 2, 4 AND THEN EVERY 4 WEEKS
     Route: 042
     Dates: start: 20130822
  9. BENLYSTA [Suspect]
     Active Substance: BELIMUMAB
     Dosage: 1000MG
     Route: 042
  10. PLAQUENIL [Concomitant]
     Active Substance: HYDROXYCHLOROQUINE SULFATE
     Indication: PRODUCT USED FOR UNKNOWN INDICATION
     Dosage: 200 MG, 1D

REACTIONS (31)
  - Immune system disorder [Unknown]
  - Hyperaesthesia [Unknown]
  - Abasia [Recovering/Resolving]
  - Pneumonia [Unknown]
  - Abdominal pain [Not Recovered/Not Resolved]
  - Diarrhoea [Not Recovered/Not Resolved]
  - Malaise [Unknown]
  - Bronchitis viral [Unknown]
  - Nasal congestion [Unknown]
  - Surgery [Unknown]
  - Adverse drug reaction [Unknown]
  - Streptococcal infection [Unknown]
  - Influenza [Unknown]
  - Underdose [Unknown]
  - Suicide attempt [Unknown]
  - Gastrointestinal disorder [Unknown]
  - Pain [Unknown]
  - Ecchymosis [Unknown]
  - Ocular discomfort [Unknown]
  - Chest discomfort [Unknown]
  - Bronchitis [Recovered/Resolved]
  - Arthralgia [Unknown]
  - Mental disorder [Unknown]
  - General physical health deterioration [Recovering/Resolving]
  - Burning sensation [Unknown]
  - Vomiting [Not Recovered/Not Resolved]
  - Joint swelling [Recovering/Resolving]
  - Cough [Unknown]
  - Pyrexia [Unknown]
  - Nasopharyngitis [Unknown]
  - Systemic lupus erythematosus [Recovering/Resolving]

NARRATIVE: CASE EVENT DATE: 201404
